FAERS Safety Report 18158244 (Version 2)
Quarter: 2020Q3

REPORT INFORMATION
  Report Type: Spontaneous
  Country: US (occurrence: US)
  Receive Date: 20200817
  Receipt Date: 20200917
  Transmission Date: 20201103
  Serious: Yes (Other)
  Sender: FDA-Public Use
  Company Number: US-UPSHER-SMITH LABORATORIES, LLC-2020USL00432

PATIENT
  Age: 69 Year
  Sex: Female

DRUGS (10)
  1. PEPCID [Concomitant]
     Active Substance: FAMOTIDINE
  2. PROTONIX [Concomitant]
     Active Substance: PANTOPRAZOLE SODIUM
  3. BUMETANIDE. [Suspect]
     Active Substance: BUMETANIDE
     Indication: PULMONARY HYPERTENSION
  4. ALDACTONE [Suspect]
     Active Substance: SPIRONOLACTONE
     Indication: HYPERTENSION
     Dosage: 25 MG, 1X/DAY
     Route: 048
     Dates: start: 202006
  5. BUMETANIDE. [Suspect]
     Active Substance: BUMETANIDE
     Indication: PULMONARY FIBROSIS
  6. SILDENAFIL (ACTELION PHARMACEUTICALS) [Suspect]
     Active Substance: SILDENAFIL
     Indication: PULMONARY ARTERIAL HYPERTENSION
     Dosage: 600 MG, 2X/DAY
     Route: 048
     Dates: start: 202006
  7. BUMETANIDE. [Suspect]
     Active Substance: BUMETANIDE
     Indication: DIURETIC THERAPY
     Dosage: 1 MG, 2X/DAY
     Route: 048
     Dates: start: 202006
  8. OFEV [Suspect]
     Active Substance: NINTEDANIB
     Indication: PULMONARY FIBROSIS
     Dosage: 100 MG, 2X/DAY
     Route: 048
     Dates: start: 202006
  9. ATENOLOL. [Suspect]
     Active Substance: ATENOLOL
     Indication: HYPERTENSION
     Dosage: 25 MG, 1X/DAY
     Route: 048
  10. UNSPECIFIED BLOOD PRESSURE MEDICATION [Concomitant]
     Active Substance: UNSPECIFIED INGREDIENT

REACTIONS (2)
  - Feeling abnormal [Recovering/Resolving]
  - Carbon dioxide increased [Unknown]

NARRATIVE: CASE EVENT DATE: 2020
